FAERS Safety Report 10257152 (Version 32)
Quarter: 2021Q3

REPORT INFORMATION
  Report Type: Other
  Country: CA (occurrence: CA)
  Receive Date: 20140625
  Receipt Date: 20210928
  Transmission Date: 20211014
  Serious: Yes (Other)
  Sender: FDA-Public Use
  Company Number: CA-ROCHE-1421580

PATIENT
  Age: 69 Year
  Sex: Female
  Weight: 173 kg

DRUGS (17)
  1. DIPHENHYDRAMINE. [Concomitant]
     Active Substance: DIPHENHYDRAMINE
     Indication: PREMEDICATION
     Route: 048
     Dates: start: 20110804, end: 20140813
  2. ACTONEL [Concomitant]
     Active Substance: RISEDRONATE SODIUM
  3. FISH OIL [Concomitant]
     Active Substance: FISH OIL
  4. PANTOPRAZOLE [Concomitant]
     Active Substance: PANTOPRAZOLE
  5. ACETAMINOPHEN. [Concomitant]
     Active Substance: ACETAMINOPHEN
     Indication: PREMEDICATION
     Route: 048
     Dates: start: 20110804, end: 20140813
  6. SYNTHROID [Concomitant]
     Active Substance: LEVOTHYROXINE SODIUM
     Indication: HYPOTHYROIDISM
  7. PREDNISONE. [Concomitant]
     Active Substance: PREDNISONE
  8. ACTEMRA [Suspect]
     Active Substance: TOCILIZUMAB
     Indication: RHEUMATOID ARTHRITIS
     Route: 042
     Dates: start: 20150430, end: 20190131
  9. TYLENOL [Concomitant]
     Active Substance: ACETAMINOPHEN
     Indication: ARTHRITIS
  10. METHYLPREDNISOLONE. [Concomitant]
     Active Substance: METHYLPREDNISOLONE
     Indication: PREMEDICATION
     Route: 042
     Dates: start: 20110804, end: 20140813
  11. FOLIC ACID. [Concomitant]
     Active Substance: FOLIC ACID
  12. CALCIUM [Concomitant]
     Active Substance: CALCIUM
  13. RITUXAN [Suspect]
     Active Substance: RITUXIMAB
     Indication: RHEUMATOID ARTHRITIS
     Route: 042
     Dates: start: 20110804, end: 20140813
  14. ACTEMRA [Suspect]
     Active Substance: TOCILIZUMAB
     Route: 042
     Dates: start: 20210706
  15. BABY ASPIRIN [Concomitant]
     Active Substance: ASPIRIN
  16. METHOTREXATE. [Concomitant]
     Active Substance: METHOTREXATE
  17. METOPROLOL. [Concomitant]
     Active Substance: METOPROLOL

REACTIONS (24)
  - Contusion [Not Recovered/Not Resolved]
  - Cataract [Unknown]
  - Humerus fracture [Unknown]
  - Rheumatoid arthritis [Not Recovered/Not Resolved]
  - Oropharyngeal pain [Unknown]
  - Arthralgia [Not Recovered/Not Resolved]
  - Fall [Unknown]
  - Wound [Recovered/Resolved]
  - Nail infection [Unknown]
  - Cataract [Not Recovered/Not Resolved]
  - Condition aggravated [Unknown]
  - Hypotension [Unknown]
  - Retinal disorder [Recovering/Resolving]
  - Hypotension [Unknown]
  - Nail infection [Not Recovered/Not Resolved]
  - Nasopharyngitis [Not Recovered/Not Resolved]
  - Colitis microscopic [Not Recovered/Not Resolved]
  - Treatment failure [Unknown]
  - Impaired healing [Recovered/Resolved]
  - Dermatitis contact [Not Recovered/Not Resolved]
  - Heart rate decreased [Unknown]
  - Rash [Recovering/Resolving]
  - Arrhythmia [Not Recovered/Not Resolved]
  - Heart rate decreased [Unknown]

NARRATIVE: CASE EVENT DATE: 2013
